FAERS Safety Report 6379454-X (Version None)
Quarter: 2009Q3

REPORT INFORMATION
  Report Type: 
  Country: None (occurrence: None)
  Receive Date: 20090928
  Receipt Date: 20090924
  Transmission Date: 20100115
  Serious: Yes (Hospitalization)
  Sender: FDA-Public Use
  Company Number: B0589687B

PATIENT
  Sex: Female

DRUGS (15)
  1. LAPATINIB [Suspect]
     Dosage: 1250MG PER DAY
     Route: 048
     Dates: start: 20090804
  2. IXABEPILONE [Suspect]
     Dosage: 61MG PER DAY
     Route: 042
     Dates: start: 20090811
  3. MAGMIN [Concomitant]
     Route: 048
     Dates: start: 20080501
  4. WARFARIN [Concomitant]
     Route: 048
     Dates: start: 20090114
  5. VENTOLIN [Concomitant]
     Route: 055
     Dates: start: 19630101
  6. SERETIDE [Concomitant]
     Route: 055
     Dates: start: 19960101
  7. ATROVENT [Concomitant]
     Route: 055
     Dates: start: 19630101
  8. ATORVASTATIN [Concomitant]
     Route: 048
     Dates: start: 20060201
  9. ACETAMINOPHEN [Concomitant]
     Dates: start: 19570101
  10. MAXOLON [Concomitant]
     Route: 048
     Dates: start: 20090804
  11. LOPERAMIDE [Concomitant]
     Route: 048
     Dates: start: 20090805
  12. LANSOPRAZOLE [Concomitant]
     Route: 048
     Dates: start: 20090811
  13. ONDANSETRON [Concomitant]
     Route: 048
     Dates: start: 20090811
  14. PERINDOPRIL [Concomitant]
     Dates: start: 20080101
  15. MAGMIN [Concomitant]

REACTIONS (5)
  - CHEST PAIN [None]
  - DEHYDRATION [None]
  - DIARRHOEA [None]
  - NAUSEA [None]
  - VOMITING [None]
